FAERS Safety Report 10783912 (Version 2)
Quarter: 2015Q1

REPORT INFORMATION
  Report Type: Spontaneous
  Country: FR (occurrence: FR)
  Receive Date: 20150210
  Receipt Date: 20150218
  Transmission Date: 20150721
  Serious: No
  Sender: FDA-Public Use
  Company Number: FR-AMGEN-FRASP2015010584

PATIENT
  Age: 59 Year
  Sex: Female

DRUGS (2)
  1. MORPHINE [Concomitant]
     Active Substance: MORPHINE
  2. XGEVA [Suspect]
     Active Substance: DENOSUMAB
     Indication: PRODUCT USED FOR UNKNOWN INDICATION
     Dosage: UNK
     Route: 065

REACTIONS (2)
  - Pulpitis dental [Unknown]
  - Toothache [Unknown]
